FAERS Safety Report 13535755 (Version 1)
Quarter: 2017Q2

REPORT INFORMATION
  Report Type: Spontaneous
  Country: FR (occurrence: FR)
  Receive Date: 20170511
  Receipt Date: 20170511
  Transmission Date: 20170830
  Serious: Yes (Death, Hospitalization, Other)
  Sender: FDA-Public Use
  Company Number: FR-AMGEN-FRASP2017069201

PATIENT
  Age: 44 Year
  Sex: Male

DRUGS (7)
  1. PANITUMUMAB [Suspect]
     Active Substance: PANITUMUMAB
     Indication: METASTASES TO LYMPH NODES
  2. PANITUMUMAB [Suspect]
     Active Substance: PANITUMUMAB
     Indication: BLADDER CANCER
     Dosage: 6 MG/KG, Q2MO
     Route: 065
     Dates: start: 201310
  3. VINBLASTINE [Concomitant]
     Active Substance: VINBLASTINE
     Indication: BLADDER CANCER
     Dosage: UNK
     Dates: start: 201310
  4. METHOTREXATE. [Concomitant]
     Active Substance: METHOTREXATE
     Indication: BLADDER CANCER
     Dosage: UNK
     Dates: start: 201310
  5. ADRIAMYCIN [Concomitant]
     Active Substance: DOXORUBICIN HYDROCHLORIDE
     Indication: BLADDER CANCER
     Dosage: UNK
     Dates: start: 201310
  6. CISPLATIN. [Concomitant]
     Active Substance: CISPLATIN
     Indication: BLADDER CANCER
     Dosage: UNK
     Dates: start: 201310
  7. PANITUMUMAB [Suspect]
     Active Substance: PANITUMUMAB
     Indication: METASTASES TO BONE

REACTIONS (12)
  - Diarrhoea [Unknown]
  - Inflammation [Unknown]
  - Acute kidney injury [Recovering/Resolving]
  - Hypertension [Unknown]
  - Chronic kidney disease [Unknown]
  - Staphylococcal sepsis [Unknown]
  - Disease progression [Fatal]
  - Hypomagnesaemia [Unknown]
  - Posterior reversible encephalopathy syndrome [Recovered/Resolved]
  - Colitis ulcerative [Unknown]
  - Abdominal pain [Unknown]
  - Skin toxicity [Unknown]

NARRATIVE: CASE EVENT DATE: 201410
